FAERS Safety Report 7290131-3 (Version None)
Quarter: 2011Q1

REPORT INFORMATION
  Report Type: 
  Country: None (occurrence: None)
  Receive Date: 20110214
  Receipt Date: 20110131
  Transmission Date: 20110831
  Serious: Yes (Death, Hospitalization, Other)
  Sender: FDA-Public Use
  Company Number: JP-PAR PHARMACEUTICAL, INC-2011SCPR002636

PATIENT
  Age: 67 Year
  Sex: Male
  Weight: 60 kg

DRUGS (4)
  1. VORICONAZOLE [Suspect]
     Indication: FUNGAL INFECTION
     Dosage: 400 MG/DAY
     Route: 042
  2. BORTEZOMIB [Suspect]
     Indication: MULTIPLE MYELOMA
     Dosage: 1.3 MG/M2 ON DAYS 1,4,8 AND 11
     Route: 065
  3. DEXAMETHASONE [Suspect]
     Indication: MULTIPLE MYELOMA
     Dosage: 20 MG/DAY ON DAYS 1,2,4,5,8,9,11 AND 12
     Route: 065
  4. MICAFUNGIN [Suspect]
     Indication: FUNGAL INFECTION
     Dosage: UNK
     Route: 065

REACTIONS (16)
  - SERUM FERRITIN INCREASED [None]
  - HYPERAMMONAEMIA [None]
  - BLOOD LACTATE DEHYDROGENASE INCREASED [None]
  - DEPRESSED LEVEL OF CONSCIOUSNESS [None]
  - ZYGOMYCOSIS [None]
  - C-REACTIVE PROTEIN INCREASED [None]
  - PULMONARY MASS [None]
  - HEPATIC ENZYME INCREASED [None]
  - BLOOD GLUCOSE INCREASED [None]
  - RENAL FAILURE ACUTE [None]
  - HAEMOSIDEROSIS [None]
  - DEATH [None]
  - TUMOUR LYSIS SYNDROME [None]
  - PANCYTOPENIA [None]
  - THROMBOCYTOPENIA [None]
  - BRONCHOPULMONARY ASPERGILLOSIS [None]
